FAERS Safety Report 25865667 (Version 1)
Quarter: 2025Q3

REPORT INFORMATION
  Report Type: Spontaneous
  Country: EU (occurrence: EU)
  Receive Date: 20250930
  Receipt Date: 20250930
  Transmission Date: 20251020
  Serious: Yes (Other)
  Sender: B. BRAUN MEDICAL INC.
  Company Number: EU-BBM-RO-BBM-202503712

PATIENT
  Age: 79 Year
  Sex: Female

DRUGS (2)
  1. ACETAMINOPHEN [Suspect]
     Active Substance: ACETAMINOPHEN
     Indication: Antibiotic prophylaxis
  2. AMOXICILLIN [Suspect]
     Active Substance: AMOXICILLIN
     Indication: Antibiotic prophylaxis

REACTIONS (8)
  - Hyperkalaemia [Unknown]
  - Acute kidney injury [Unknown]
  - Nephritis allergic [Unknown]
  - Hypernatraemia [Unknown]
  - Confusional state [Unknown]
  - Vasoconstriction [Unknown]
  - Oliguria [Unknown]
  - Metabolic acidosis [Unknown]
